FAERS Safety Report 9868348 (Version 2)
Quarter: 2014Q1

REPORT INFORMATION
  Report Type: Spontaneous
  Country: US (occurrence: US)
  Receive Date: 20140204
  Receipt Date: 20140204
  Transmission Date: 20141002
  Serious: Yes (Hospitalization)
  Sender: FDA-Public Use
  Company Number: US-B.I. PHARMACEUTICALS,INC./RIDGEFIELD-2013-BI-34736BP

PATIENT
  Sex: Male
  Weight: 86.2 kg

DRUGS (17)
  1. PRADAXA [Suspect]
     Indication: ATRIAL FIBRILLATION
     Dosage: 150 MG
     Route: 048
     Dates: start: 20111125, end: 20120401
  2. COREG [Suspect]
     Indication: PRODUCT USED FOR UNKNOWN INDICATION
     Dosage: 6.25 MG
     Route: 048
  3. DIGOXIN [Suspect]
     Indication: PRODUCT USED FOR UNKNOWN INDICATION
     Dosage: 0.125 MG
     Route: 048
  4. LASIX [Suspect]
     Indication: HYPERTENSION
     Dosage: 80 MG
     Route: 048
  5. ACE INHIBITORS [Suspect]
     Indication: PRODUCT USED FOR UNKNOWN INDICATION
  6. SPIRIVA [Concomitant]
     Dosage: 36 MCG
     Route: 048
  7. KLOR-CON [Concomitant]
     Dosage: 40 MEQ
     Route: 048
  8. ASPIRIN [Concomitant]
     Dosage: 81 MG
     Route: 048
  9. LEVAQUIN [Concomitant]
     Dosage: 500 MG
     Route: 048
  10. LIPITOR [Concomitant]
     Dosage: 40 MG
     Route: 048
  11. LISINOPRIL [Concomitant]
     Dosage: 10 MG
     Route: 048
  12. ZOLPIDEM TARTRATE [Concomitant]
     Route: 048
  13. METOPROLOL TARTRATE [Concomitant]
     Dosage: 50 MG
     Route: 048
  14. MULTIVITAMIN [Concomitant]
     Route: 048
  15. AMIODARONE HYDROCHLORIDE [Concomitant]
     Dosage: 400 MG
     Route: 048
  16. DULERA [Concomitant]
     Route: 055
  17. OXYGEN [Concomitant]
     Indication: CHRONIC OBSTRUCTIVE PULMONARY DISEASE

REACTIONS (6)
  - Gastrointestinal haemorrhage [Unknown]
  - Hypochromic anaemia [Unknown]
  - Coagulopathy [Unknown]
  - Bradycardia [Unknown]
  - Renal failure acute [Unknown]
  - Spider naevus [Unknown]
